FAERS Safety Report 4389002-1 (Version None)
Quarter: 2004Q3

REPORT INFORMATION
  Report Type: 
  Country: None (occurrence: None)
  Receive Date: 20040702
  Receipt Date: 20040621
  Transmission Date: 20050211
  Serious: Yes (Hospitalization)
  Sender: FDA-Public Use
  Company Number: PHFR2004GB02568

PATIENT
  Age: 67 Year
  Sex: Female

DRUGS (4)
  1. DICLOFENAC [Suspect]
     Indication: OSTEOARTHRITIS
     Dosage: 75 MG, BID
     Route: 048
     Dates: start: 20030501, end: 20040601
  2. ADALAT [Concomitant]
     Indication: HYPERTENSION
     Dosage: 10 MG, QD
     Route: 048
  3. CO-CODAMOL [Concomitant]
     Indication: PAIN
     Dosage: (30/500) 2 TAB QDS
     Route: 048
  4. IRON SULFATETHIAMIN COMPOUND TAB [Concomitant]
     Indication: ANAEMIA
     Dosage: 200 MG, TID
     Route: 048
     Dates: start: 20040601

REACTIONS (3)
  - CIRCULATORY COLLAPSE [None]
  - GASTRITIS EROSIVE [None]
  - HAEMOGLOBIN DECREASED [None]
